FAERS Safety Report 6148441-9 (Version None)
Quarter: 2009Q2

REPORT INFORMATION
  Report Type: 
  Country: None (occurrence: None)
  Receive Date: 20090406
  Receipt Date: 20090331
  Transmission Date: 20091009
  Serious: Yes (Hospitalization)
  Sender: FDA-Public Use
  Company Number: 2008SP006305

PATIENT
  Age: 58 Year
  Sex: Male
  Weight: 67.2 kg

DRUGS (7)
  1. PEG-INTRON [Suspect]
     Indication: HEPATIC CIRRHOSIS
     Dosage: 1.0 MCG/KG; QW; SC, 0.5 MCG/KG; QW; SC
     Route: 058
     Dates: start: 20080319, end: 20080319
  2. PEG-INTRON [Suspect]
     Indication: HEPATIC CIRRHOSIS
     Dosage: 1.0 MCG/KG; QW; SC, 0.5 MCG/KG; QW; SC
     Route: 058
     Dates: start: 20080328, end: 20080423
  3. PEG-INTRON [Suspect]
     Indication: HEPATIC CIRRHOSIS
     Dosage: 1.0 MCG/KG; QW; SC, 0.5 MCG/KG; QW; SC
     Route: 058
     Dates: start: 20080430, end: 20080507
  4. PEG-INTRON [Suspect]
     Indication: HEPATIC CIRRHOSIS
     Dosage: 1.0 MCG/KG; QW; SC, 0.5 MCG/KG; QW; SC
     Route: 058
     Dates: start: 20080514, end: 20081001
  5. RIBAVIRIN [Suspect]
     Indication: HEPATIC CIRRHOSIS
     Dosage: 600 MG; QD; PO, 200 MG; BID; PO, 200 MG; QAM; PO
     Route: 048
     Dates: start: 20080319, end: 20080422
  6. RIBAVIRIN [Suspect]
     Indication: HEPATIC CIRRHOSIS
     Dosage: 600 MG; QD; PO, 200 MG; BID; PO, 200 MG; QAM; PO
     Route: 048
     Dates: start: 20080423, end: 20081007
  7. RIBAVIRIN [Suspect]
     Indication: HEPATIC CIRRHOSIS
     Dosage: 600 MG; QD; PO, 200 MG; BID; PO, 200 MG; QAM; PO
     Route: 048
     Dates: start: 20081008, end: 20081008

REACTIONS (6)
  - ABNORMAL SENSATION IN EYE [None]
  - DIPLOPIA [None]
  - HAEMOGLOBIN DECREASED [None]
  - INTERSTITIAL LUNG DISEASE [None]
  - NEUTROPHIL COUNT DECREASED [None]
  - PLATELET COUNT DECREASED [None]
